FAERS Safety Report 6790426-3 (Version None)
Quarter: 2010Q2

REPORT INFORMATION
  Report Type: 
  Country: None (occurrence: None)
  Receive Date: 20100624
  Receipt Date: 20100614
  Transmission Date: 20101027
  Serious: Yes (Hospitalization)
  Sender: FDA-Public Use
  Company Number: US-SANOFI-AVENTIS-2010SA034936

PATIENT
  Age: 76 Year
  Sex: Female

DRUGS (4)
  1. AMBIEN CR [Suspect]
     Indication: INSOMNIA
     Route: 048
     Dates: start: 20080101, end: 20100601
  2. SYNTHROID [Concomitant]
     Indication: THYROID DISORDER
  3. COUMADIN [Concomitant]
     Indication: ANTICOAGULANT THERAPY
  4. LEXAPRO [Concomitant]

REACTIONS (5)
  - ABNORMAL BEHAVIOUR [None]
  - ABNORMAL DREAMS [None]
  - ATRIAL FIBRILLATION [None]
  - DRUG INEFFECTIVE [None]
  - ENURESIS [None]
